FAERS Safety Report 15952571 (Version 1)
Quarter: 2019Q1

REPORT INFORMATION
  Report Type: Spontaneous
  Country: US (occurrence: US)
  Receive Date: 20190211
  Receipt Date: 20190211
  Transmission Date: 20190417
  Serious: No
  Sender: FDA-Public Use
  Company Number: US-ASTRAZENECA-2019SE20461

PATIENT
  Sex: Male
  Weight: 81.7 kg

DRUGS (5)
  1. NEXIUM [Suspect]
     Active Substance: ESOMEPRAZOLE MAGNESIUM
     Route: 048
  2. OMEPRAZOLE. [Suspect]
     Active Substance: OMEPRAZOLE
     Indication: GASTROOESOPHAGEAL REFLUX DISEASE
     Route: 048
     Dates: start: 1990
  3. RESTORIL [Suspect]
     Active Substance: TEMAZEPAM
     Route: 065
  4. PRISTIQ EXTENDED-RELEASE [Suspect]
     Active Substance: DESVENLAFAXINE SUCCINATE
     Route: 065
  5. KLONOPIN [Suspect]
     Active Substance: CLONAZEPAM
     Route: 065

REACTIONS (6)
  - Bone pain [Unknown]
  - Abdominal distension [Unknown]
  - Arthralgia [Unknown]
  - Pain in extremity [Unknown]
  - Cerebral disorder [Unknown]
  - Abdominal discomfort [Unknown]
